FAERS Safety Report 20934514 (Version 1)
Quarter: 2022Q2

REPORT INFORMATION
  Report Type: Spontaneous
  Country: US (occurrence: US)
  Receive Date: 20220608
  Receipt Date: 20220608
  Transmission Date: 20220721
  Serious: No
  Sender: FDA-Public Use
  Company Number: US-JNJFOC-20220601226

PATIENT
  Sex: Male

DRUGS (2)
  1. ERLEADA [Suspect]
     Active Substance: APALUTAMIDE
     Indication: Product used for unknown indication
     Dosage: TAKE 4 ?TABLETS BY MOUTH ?ONCE DAILY AS ?DIRECTED
     Route: 048
  2. ORGOVYX [Interacting]
     Active Substance: RELUGOLIX
     Indication: Product used for unknown indication

REACTIONS (3)
  - Drug interaction [Unknown]
  - Mental status changes [Not Recovered/Not Resolved]
  - Quality of life decreased [Not Recovered/Not Resolved]
